FAERS Safety Report 17047346 (Version 3)
Quarter: 2020Q1

REPORT INFORMATION
  Report Type: Report from Study
  Country: US (occurrence: US)
  Receive Date: 20191119
  Receipt Date: 20200325
  Transmission Date: 20200409
  Serious: Yes (Other)
  Sender: FDA-Public Use
  Company Number: NVSC2019US040394

PATIENT
  Age: 48 Year
  Sex: Male

DRUGS (2)
  1. MAYZENT [Suspect]
     Active Substance: SIPONIMOD
     Indication: MULTIPLE SCLEROSIS RELAPSE
     Dosage: 2 MG, QD
     Route: 048
     Dates: start: 20191004, end: 201910
  2. MAYZENT [Suspect]
     Active Substance: SIPONIMOD
     Indication: MULTIPLE SCLEROSIS

REACTIONS (7)
  - Fall [Unknown]
  - Vomiting [Unknown]
  - Head injury [Unknown]
  - Abdominal distension [Recovered/Resolved]
  - Abdominal discomfort [Unknown]
  - Loss of consciousness [Unknown]
  - Weight decreased [Recovered/Resolved]

NARRATIVE: CASE EVENT DATE: 201910
